FAERS Safety Report 18793993 (Version 2)
Quarter: 2021Q1

REPORT INFORMATION
  Report Type: Spontaneous
  Country: US (occurrence: US)
  Receive Date: 20210127
  Receipt Date: 20210219
  Transmission Date: 20210419
  Serious: Yes (Death, Other)
  Sender: FDA-Public Use
  Company Number: US-PFIZER INC-2019146572

PATIENT
  Age: 56 Year
  Sex: Female

DRUGS (2)
  1. FRAGMIN [Suspect]
     Active Substance: DALTEPARIN SODIUM
     Indication: ANTICOAGULANT THERAPY
     Dosage: 1000 IU, 1X/DAY
  2. FRAGMIN [Suspect]
     Active Substance: DALTEPARIN SODIUM
     Indication: NEOPLASM MALIGNANT
     Dosage: 10000 ML

REACTIONS (1)
  - Death [Fatal]
